FAERS Safety Report 9417153 (Version 1)
Quarter: 2013Q3

REPORT INFORMATION
  Report Type: Spontaneous
  Country: KR (occurrence: None)
  Receive Date: 20130722
  Receipt Date: 20130722
  Transmission Date: 20140515
  Serious: Yes (Hospitalization)
  Sender: FDA-Public Use
  Company Number: TPA2013A06690

PATIENT
  Age: 34 Year
  Sex: Male

DRUGS (2)
  1. COLCHICINE [Suspect]
     Indication: GOUT
     Dosage: 1MG 3 IN 1 D
  2. CYCLOSPORINE [Concomitant]

REACTIONS (5)
  - Pelvic pain [None]
  - Cough [None]
  - Dyspnoea [None]
  - Asthenia [None]
  - Diarrhoea [None]
